FAERS Safety Report 8609412-3 (Version None)
Quarter: 2012Q3

REPORT INFORMATION
  Report Type: 
  Country: None (occurrence: None)
  Receive Date: 20120821
  Receipt Date: 20120808
  Transmission Date: 20120928
  Serious: No
  Sender: FDA-Public Use
  Company Number: US-ASTRAZENECA-2012SE56391

PATIENT
  Age: 57 Year
  Sex: Male
  Weight: 280 kg

DRUGS (4)
  1. LITHIUM CARBONATE [Concomitant]
     Indication: BIPOLAR DISORDER
  2. ARICEPT [Concomitant]
     Indication: AMNESIA
  3. SEROQUEL XR [Suspect]
     Indication: BIPOLAR DISORDER
     Route: 048
     Dates: start: 20020101
  4. LAMICTAL [Concomitant]
     Indication: DEPRESSION

REACTIONS (3)
  - AMNESIA [None]
  - DEPRESSION [None]
  - BIPOLAR DISORDER [None]
